FAERS Safety Report 18465043 (Version 1)
Quarter: 2020Q4

REPORT INFORMATION
  Report Type: Spontaneous
  Country: US (occurrence: US)
  Receive Date: 20201104
  Receipt Date: 20201104
  Transmission Date: 20210114
  Serious: No
  Sender: FDA-Public Use
  Company Number: US-PFIZER INC-2020425936

PATIENT
  Age: 76 Year
  Sex: Female

DRUGS (1)
  1. IBRANCE [Suspect]
     Active Substance: PALBOCICLIB
     Indication: MALIGNANT NIPPLE NEOPLASM FEMALE
     Dosage: 75 MG, CYCLIC(QD (ONCE A DAY) X 21D Q (EVERY) 28D(DAY))
     Dates: start: 20171215

REACTIONS (1)
  - Neoplasm progression [Not Recovered/Not Resolved]
